FAERS Safety Report 13390042 (Version 3)
Quarter: 2017Q3

REPORT INFORMATION
  Report Type: Report from Study
  Country: JP (occurrence: JP)
  Receive Date: 20170331
  Receipt Date: 20170705
  Transmission Date: 20171127
  Serious: Yes (Disabling)
  Sender: FDA-Public Use
  Company Number: JP-ROCHE-1913926

PATIENT
  Age: 85 Year
  Sex: Female

DRUGS (8)
  1. RANIBIZUMAB. [Suspect]
     Active Substance: RANIBIZUMAB
     Indication: RETINAL VEIN OCCLUSION
     Dosage: 0.05 ML, UNK
     Route: 031
     Dates: start: 20150824
  2. CRAVIT [Concomitant]
     Active Substance: LEVOFLOXACIN
     Indication: ANTIBIOTIC PROPHYLAXIS
     Dosage: BEFORE AND AFTER INJECTION
     Route: 047
     Dates: start: 20150824
  3. RANIBIZUMAB. [Suspect]
     Active Substance: RANIBIZUMAB
     Dosage: 0.05 ML, UNK
     Route: 031
     Dates: start: 20151207, end: 20151207
  4. CRAVIT [Concomitant]
     Active Substance: LEVOFLOXACIN
     Dosage: BEFORE AND AFTER INJECTION
     Route: 047
     Dates: start: 20151207
  5. CRAVIT [Concomitant]
     Active Substance: LEVOFLOXACIN
     Dosage: BEFORE AND AFTER INJECTION (LEFT EYE)
     Route: 047
     Dates: start: 20160411
  6. RANIBIZUMAB. [Suspect]
     Active Substance: RANIBIZUMAB
     Dosage: 0.05 ML, UNK
     Route: 031
     Dates: start: 20160411, end: 20160411
  7. RANIBIZUMAB. [Suspect]
     Active Substance: RANIBIZUMAB
     Dosage: 0.05 ML, UNK
     Route: 031
     Dates: start: 20160712, end: 20160712
  8. CRAVIT [Concomitant]
     Active Substance: LEVOFLOXACIN
     Dosage: BEFORE AND AFTER INJECTION (LEFT EYE)
     Route: 047
     Dates: start: 20160712

REACTIONS (1)
  - Cerebral infarction [Unknown]

NARRATIVE: CASE EVENT DATE: 20160815
